FAERS Safety Report 9770152 (Version 1)
Quarter: 2013Q4

REPORT INFORMATION
  Report Type: Spontaneous
  Country: US (occurrence: US)
  Receive Date: 20131218
  Receipt Date: 20131218
  Transmission Date: 20140711
  Serious: No
  Sender: FDA-Public Use
  Company Number: US-VERTEX PHARMACEUTICALS INC-AE-2011-001020

PATIENT
  Age: 50 Year
  Sex: Male
  Weight: 109.9 kg

DRUGS (3)
  1. INCIVEK [Suspect]
     Indication: HEPATITIS C
     Dates: start: 20110805
  2. COPEGUS [Concomitant]
     Indication: HEPATITIS C
     Dates: start: 20110805
  3. PEGASYS [Concomitant]
     Indication: HEPATITIS C
     Dates: start: 20110805

REACTIONS (3)
  - Local swelling [Not Recovered/Not Resolved]
  - Dysphagia [Not Recovered/Not Resolved]
  - Vomiting [Not Recovered/Not Resolved]
